FAERS Safety Report 9929493 (Version 2)
Quarter: 2014Q1

REPORT INFORMATION
  Report Type: Report from Study
  Country: US (occurrence: US)
  Receive Date: 20140227
  Receipt Date: 20140307
  Transmission Date: 20141002
  Serious: Yes (Death)
  Sender: FDA-Public Use
  Company Number: GXBR2014US000738

PATIENT
  Age: 57 Year
  Sex: Male
  Weight: 58.82 kg

DRUGS (10)
  1. ENOXAPARIN SODIUM [Suspect]
     Indication: SUBCLAVIAN VEIN THROMBOSIS
     Dosage: 120 MG, QD
     Route: 058
     Dates: start: 20110105, end: 20140210
  2. ENOXAPARIN SODIUM [Suspect]
     Indication: ONCOLOGIC COMPLICATION
  3. ACETAMINOPHEN [Concomitant]
     Dosage: 1000 MG, Q6H, PRN
     Route: 048
  4. DOCUSATE SODIUM [Concomitant]
     Dosage: 50-100MG, BID, PRN
     Route: 048
  5. IBUPROFEN [Concomitant]
     Indication: PAIN
     Dosage: 800 MG, Q6H, PRN
     Route: 048
  6. LORAZEPAM [Concomitant]
     Indication: ANXIETY
     Dosage: 1 MG, Q6H, PRN
     Route: 048
  7. OXANDROLONE [Concomitant]
     Indication: DECREASED APPETITE
     Dosage: 5 MG, BID
  8. OXYCODONE [Concomitant]
     Indication: PAIN
     Dosage: 5 MG (1-2 TABLETS) Q4H, PRN
  9. PROCHLORPERAZINE [Concomitant]
     Indication: NAUSEA
     Dosage: 10 MG, Q6H, PRN
     Route: 048
  10. ZOLPIDEM [Concomitant]
     Indication: SLEEP DISORDER
     Dosage: 10 MG QHS, PRN
     Route: 048

REACTIONS (1)
  - Non-small cell lung cancer [Fatal]
